FAERS Safety Report 6888776-5 (Version None)
Quarter: 2010Q3

REPORT INFORMATION
  Report Type: 
  Country: None (occurrence: None)
  Receive Date: 20100730
  Receipt Date: 20071115
  Transmission Date: 20110219
  Serious: No
  Sender: FDA-Public Use
  Company Number: US-PFIZER INC-2007083589

PATIENT
  Sex: Male
  Weight: 24.04 kg

DRUGS (3)
  1. VIBRAMYCIN [Suspect]
     Indication: ROCKY MOUNTAIN SPOTTED FEVER
     Route: 048
     Dates: start: 20071002, end: 20071108
  2. MOTRIN [Concomitant]
  3. ACETAMINOPHEN [Concomitant]

REACTIONS (2)
  - PSYCHOMOTOR HYPERACTIVITY [None]
  - VOMITING [None]
